FAERS Safety Report 4647198-8 (Version None)
Quarter: 2005Q2

REPORT INFORMATION
  Report Type: 
  Country: None (occurrence: None)
  Receive Date: 20050428
  Receipt Date: 20050425
  Transmission Date: 20051028
  Serious: Yes (Other)
  Sender: FDA-Public Use
  Company Number: FR-RB-1561-2005

PATIENT
  Sex: Male

DRUGS (1)
  1. BUPRENORPHINE HCL [Suspect]
     Indication: DRUG USE FOR UNKNOWN INDICATION
     Dosage: DOSAGE UNKNOWN
     Route: 042

REACTIONS (3)
  - EYE INFECTION FUNGAL [None]
  - INTENTIONAL MISUSE [None]
  - VISUAL ACUITY REDUCED [None]
